FAERS Safety Report 11921950 (Version 1)
Quarter: 2016Q1

REPORT INFORMATION
  Report Type: Spontaneous
  Country: CA (occurrence: CA)
  Receive Date: 20160115
  Receipt Date: 20160115
  Transmission Date: 20160526
  Serious: Yes (Other)
  Sender: FDA-Public Use
  Company Number: CA-TEVA-625111USA

PATIENT
  Age: 43 Year
  Sex: Female

DRUGS (4)
  1. COPAXONE [Suspect]
     Active Substance: GLATIRAMER ACETATE
     Indication: MULTIPLE SCLEROSIS
     Dosage: COPAXONE 20MG/ML
     Route: 058
     Dates: start: 20120809
  2. VITAMIN B [Concomitant]
     Active Substance: VITAMIN B
  3. VITAMIN B12 [Concomitant]
     Active Substance: CYANOCOBALAMIN
  4. SEROQUEL [Concomitant]
     Active Substance: QUETIAPINE FUMARATE

REACTIONS (6)
  - Injection site necrosis [Unknown]
  - Off label use [Unknown]
  - Injection site erythema [Unknown]
  - Incorrect route of drug administration [Unknown]
  - Chemical burn of skin [Unknown]
  - Injection site bruising [Unknown]

NARRATIVE: CASE EVENT DATE: 2013
